FAERS Safety Report 8792032 (Version 2)
Quarter: 2012Q4

REPORT INFORMATION
  Report Type: 
  Country: US (occurrence: US)
  Receive Date: 20120918
  Receipt Date: 20121008
  Transmission Date: 20130627
  Serious: No
  Sender: FDA-Public Use
  Company Number: US-VERTEX PHARMACEUTICAL INC.-AE-2012-011692

PATIENT
  Age: 58 None
  Sex: Male
  Weight: 117 kg

DRUGS (13)
  1. VX-950 [Suspect]
     Indication: HEPATITIS C
     Dosage: 750 mg, tid
     Route: 048
     Dates: start: 20120726
  2. PEGASYS [Concomitant]
     Indication: HEPATITIS C
     Dosage: 180 ?g, UNK
     Route: 058
     Dates: start: 20120803
  3. RIBAVIRIN [Concomitant]
     Indication: HEPATITIS C
     Dosage: 600 mg, bid
     Route: 048
     Dates: start: 20120726
  4. VERAPAMIL [Concomitant]
     Indication: HYPERTENSION
     Dosage: 240 mg, qd
     Route: 048
  5. TOPAMAX [Concomitant]
     Indication: HYPERTENSION
     Dosage: 200 mg, bid
     Route: 048
  6. BENICAR HCT [Concomitant]
     Indication: HYPERTENSION
     Dosage: 40\25 mg qd
     Route: 048
  7. MOBIC [Concomitant]
     Indication: ARTHRALGIA
     Dosage: 7.5 mg, qd
     Route: 048
  8. ASPIRIN [Concomitant]
     Dosage: 162 mg, qd
     Route: 048
  9. VITAMIN D3 [Concomitant]
     Dosage: 2000 IU, qd
     Route: 048
  10. FISH OIL [Concomitant]
     Dosage: 1000 mg, bid
     Route: 048
  11. VITAMIN E                          /00110501/ [Concomitant]
     Dosage: 400 IU, qd
     Route: 048
  12. VITAMIN B12                        /00056201/ [Concomitant]
     Dosage: 1000 mg, qd
     Route: 048
  13. MULTIVITAMIN                       /00097801/ [Concomitant]
     Dosage: UNK, prn
     Route: 048

REACTIONS (7)
  - Skin discolouration [Unknown]
  - Insomnia [Not Recovered/Not Resolved]
  - Rash pruritic [Not Recovered/Not Resolved]
  - Anorectal discomfort [Not Recovered/Not Resolved]
  - Haematochezia [Not Recovered/Not Resolved]
  - Pruritus [Not Recovered/Not Resolved]
  - Anal pruritus [Not Recovered/Not Resolved]
